FAERS Safety Report 6475578-7 (Version None)
Quarter: 2009Q4

REPORT INFORMATION
  Report Type: 
  Country: None (occurrence: None)
  Receive Date: 20091204
  Receipt Date: 20091123
  Transmission Date: 20100525
  Serious: Yes (Other)
  Sender: FDA-Public Use
  Company Number: US-MERCK-0910USA03353

PATIENT
  Sex: Female
  Weight: 64 kg

DRUGS (30)
  1. ZETIA [Suspect]
     Route: 048
  2. LIPITOR [Concomitant]
     Route: 065
  3. ASPIRIN [Concomitant]
     Route: 048
  4. ATENOLOL [Concomitant]
     Route: 048
  5. CHOLECALCIFEROL [Concomitant]
     Route: 048
  6. WELCHOL [Concomitant]
     Route: 048
  7. DORZOLAMIDE HYDROCHLORIDE AND TIMOLOL MALEATE [Concomitant]
     Route: 047
  8. ERGOCALCIFEROL [Concomitant]
     Route: 048
  9. FENOFIBRATE [Concomitant]
     Route: 048
  10. FERROUS SULFATE [Concomitant]
     Route: 048
  11. SODIUM FLUORIDE AND VITAMINS (UNSPECIFIED) [Concomitant]
     Route: 048
  12. IRON (UNSPECIFIED) [Concomitant]
     Route: 048
  13. ISOSORBIDE MONONITRATE [Concomitant]
     Route: 048
  14. VITAMINS (UNSPECIFIED) [Concomitant]
     Route: 048
  15. NIACIN [Concomitant]
     Route: 048
  16. NITROLINGUAL [Concomitant]
  17. OMEGA-3 MARINE TRIGLYCERIDES [Concomitant]
     Route: 048
  18. ONDANSETRON HYDROCHLORIDE [Concomitant]
     Route: 048
  19. PROTONIX [Concomitant]
     Route: 048
  20. POTASSIUM CHLORIDE [Concomitant]
     Route: 048
  21. PRAVASTATIN SODIUM [Concomitant]
     Route: 048
  22. ACIPHEX [Concomitant]
     Route: 048
  23. ROPINIROLE HYDROCHLORIDE [Concomitant]
     Route: 048
  24. ZOLOFT [Concomitant]
     Route: 048
  25. WARFARIN SODIUM [Concomitant]
     Route: 048
  26. AMBIEN [Concomitant]
     Route: 048
  27. FOSAMAX [Concomitant]
     Route: 048
  28. DIAZEPAM [Concomitant]
     Route: 048
  29. MESALAMINE [Concomitant]
     Route: 048
  30. FOLIC ACID [Concomitant]
     Route: 048

REACTIONS (5)
  - ADVERSE EVENT [None]
  - ASTHENIA [None]
  - CORONARY ARTERY DISEASE [None]
  - MYALGIA [None]
  - TRANSIENT ISCHAEMIC ATTACK [None]
